FAERS Safety Report 11562947 (Version 1)
Quarter: 2015Q3

REPORT INFORMATION
  Report Type: Spontaneous
  Country: US (occurrence: US)
  Receive Date: 20150916
  Receipt Date: 20150916
  Transmission Date: 20151125
  Serious: No
  Sender: FDA-Public Use
  Company Number: US-ELI_LILLY_AND_COMPANY-US200901000277

PATIENT
  Sex: Female

DRUGS (5)
  1. DURAGESIC [Concomitant]
     Active Substance: FENTANYL
  2. FORTEO [Suspect]
     Active Substance: TERIPARATIDE
     Dates: start: 20081229, end: 20090101
  3. TYLENOL EXTRA STRENGTH [Concomitant]
     Active Substance: ACETAMINOPHEN
  4. XANAX [Concomitant]
     Active Substance: ALPRAZOLAM
  5. VITAMINS NOS [Concomitant]
     Active Substance: VITAMINS

REACTIONS (8)
  - Visual impairment [Recovered/Resolved]
  - Tremor [Recovered/Resolved]
  - Conversion disorder [Recovered/Resolved]
  - Feeling abnormal [Recovered/Resolved]
  - Euphoric mood [Recovered/Resolved]
  - Somnolence [Recovered/Resolved]
  - Fear [Recovered/Resolved]
  - Insomnia [Recovered/Resolved]

NARRATIVE: CASE EVENT DATE: 20090101
